FAERS Safety Report 4868346-0 (Version None)
Quarter: 2005Q4

REPORT INFORMATION
  Report Type: 
  Country: None (occurrence: None)
  Receive Date: 20051223
  Receipt Date: 20051220
  Transmission Date: 20060501
  Serious: Yes (Hospitalization, Other)
  Sender: FDA-Public Use
  Company Number: 216538

PATIENT
  Age: 37 Year
  Sex: Male
  Weight: 75 kg

DRUGS (2)
  1. AVASTIN [Suspect]
     Indication: CARCINOID TUMOUR
     Dosage: 15MG/KG Q3W INTRAVENOUS
     Route: 042
  2. SANDOSTATIN [Concomitant]

REACTIONS (2)
  - BLOOD PRESSURE INCREASED [None]
  - FIBRINOLYSIS INCREASED [None]
